FAERS Safety Report 17088524 (Version 1)
Quarter: 2019Q4

REPORT INFORMATION
  Report Type: Report from Study
  Country: MX (occurrence: MX)
  Receive Date: 20191128
  Receipt Date: 20191128
  Transmission Date: 20200122
  Serious: Yes (Other)
  Sender: FDA-Public Use
  Company Number: NVSC2019MX050788

PATIENT
  Age: 78 Year
  Sex: Male
  Weight: 77 kg

DRUGS (2)
  1. EXFORGE [Suspect]
     Active Substance: AMLODIPINE BESYLATE\VALSARTAN
     Dosage: 1 DF, QD, (AMLODIPINE 10/VALSARTAN320 MG)
     Route: 048
     Dates: start: 201910
  2. EXFORGE [Suspect]
     Active Substance: AMLODIPINE BESYLATE\VALSARTAN
     Indication: HYPERTENSION
     Dosage: 1 DF, QD, (AMLIDPINE 10/ VALSARTAN160 MG), APPROXIMATELY 4 YEARS AGO
     Route: 048
     Dates: end: 201910

REACTIONS (4)
  - Visual impairment [Unknown]
  - Myasthenia gravis [Unknown]
  - Blood potassium decreased [Unknown]
  - Prostatic disorder [Recovering/Resolving]

NARRATIVE: CASE EVENT DATE: 2017
